FAERS Safety Report 7161746-8 (Version None)
Quarter: 2010Q4

REPORT INFORMATION
  Report Type: 
  Country: None (occurrence: None)
  Receive Date: 20101201
  Receipt Date: 20101116
  Transmission Date: 20110411
  Serious: Yes (Congenital Anomaly, Other)
  Sender: FDA-Public Use
  Company Number: AUR-APL-2010-02871

PATIENT

DRUGS (5)
  1. FLUOXETINE [Suspect]
     Indication: DEPRESSION
     Dosage: 20MG-QD-TRANSPLACENTAL
     Route: 064
     Dates: start: 20090817, end: 20091216
  2. METHADONE [Suspect]
     Indication: DRUG DEPENDENCE
     Dosage: 130MG-QD-TRANSPLACENTAL
     Route: 064
     Dates: start: 20081101, end: 20100525
  3. METHADONE [Suspect]
     Indication: DRUG DEPENDENCE
     Dosage: 100MG-QD-TRANSPLACENTAL
     Route: 064
     Dates: start: 20100525
  4. TRAZODONE [Suspect]
     Indication: DEPRESSION
     Dosage: 50MG-QD-TRANSPLACENTAL
     Route: 064
     Dates: start: 20090817, end: 20091216
  5. CERAZETTE (DESOGESTREL) [Concomitant]

REACTIONS (4)
  - CHOROIDAL COLOBOMA [None]
  - IRIS COLOBOMA [None]
  - MATERNAL DRUGS AFFECTING FOETUS [None]
  - OPTIC NERVE DISORDER [None]
